FAERS Safety Report 9714237 (Version 1)
Quarter: 2013Q4

REPORT INFORMATION
  Report Type: Spontaneous
  Country: US (occurrence: US)
  Receive Date: 20131126
  Receipt Date: 20131126
  Transmission Date: 20140711
  Serious: No
  Sender: FDA-Public Use
  Company Number: US-GILEAD-2008-0019466

PATIENT
  Sex: Male
  Weight: 52.16 kg

DRUGS (8)
  1. LETAIRIS [Suspect]
     Indication: PULMONARY ARTERIAL HYPERTENSION
     Route: 048
     Dates: start: 20081203
  2. PREDNISONE [Concomitant]
  3. MEGESTROL [Concomitant]
  4. ALBUTEROL INHALER [Concomitant]
  5. ADVAIR DISKUS 500-50 [Concomitant]
  6. CELEXA [Concomitant]
  7. DOXYCYCLINE [Concomitant]
  8. VICODIN [Concomitant]

REACTIONS (1)
  - Oedema [None]
